FAERS Safety Report 5505260-1 (Version None)
Quarter: 2007Q4

REPORT INFORMATION
  Report Type: 
  Country: None (occurrence: None)
  Receive Date: 20071102
  Receipt Date: 20071022
  Transmission Date: 20080405
  Serious: Yes (Other)
  Sender: FDA-Public Use
  Company Number: US-JNJFOC-20071100408

PATIENT
  Sex: Female

DRUGS (7)
  1. TYLENOL (CAPLET) [Suspect]
     Indication: HEADACHE
  2. TYLENOL (CAPLET) [Suspect]
     Indication: VOMITING
  3. LEXAPRO [Concomitant]
  4. ASPIRIN [Concomitant]
  5. FOLATE [Concomitant]
  6. LAMICTAL [Concomitant]
  7. BEER [Concomitant]

REACTIONS (1)
  - PARTIAL SEIZURES [None]
